FAERS Safety Report 20337319 (Version 3)
Quarter: 2022Q1

REPORT INFORMATION
  Report Type: Spontaneous
  Country: US (occurrence: US)
  Receive Date: 20220114
  Receipt Date: 20220120
  Transmission Date: 20220423
  Serious: No
  Sender: FDA-Public Use
  Company Number: US-SA-SAC20220107000281

PATIENT
  Sex: Male

DRUGS (4)
  1. DUPIXENT [Suspect]
     Active Substance: DUPILUMAB
     Dosage: UNK UNK, TOTAL
     Route: 058
  2. DUPIXENT [Suspect]
     Active Substance: DUPILUMAB
     Dosage: 300 MG, QOW
     Route: 058
  3. MELOXICAM [Concomitant]
     Active Substance: MELOXICAM
  4. CEFIXIME [Concomitant]
     Active Substance: CEFIXIME

REACTIONS (3)
  - Skin burning sensation [Unknown]
  - Rash pruritic [Unknown]
  - Pruritus [Unknown]
